FAERS Safety Report 15959430 (Version 1)
Quarter: 2019Q1

REPORT INFORMATION
  Report Type: Report from Study
  Country: ZA (occurrence: ZA)
  Receive Date: 20190214
  Receipt Date: 20190214
  Transmission Date: 20190417
  Serious: Yes (Life-Threatening, Disabling)
  Sender: FDA-Public Use
  Company Number: ZA-SA-2018SA274615

PATIENT
  Age: 63 Year
  Sex: Female

DRUGS (11)
  1. TOUJEO [Suspect]
     Active Substance: INSULIN GLARGINE
     Dosage: UNK
  2. OXPOLA [Concomitant]
     Active Substance: PRAMIPEXOLE DIHYDROCHLORIDE
     Dosage: 2 MG, BID, AFTER SUPPER AND AFTER BREAKFAST
     Dates: start: 20181106
  3. WARFARIN [Concomitant]
     Active Substance: WARFARIN
  4. DAPAGLIFLOZIN. [Concomitant]
     Active Substance: DAPAGLIFLOZIN
     Dosage: 10 MG, QD
     Route: 065
     Dates: start: 20180101
  5. DORMONOCT [Concomitant]
     Active Substance: LOPRAZOLAM
  6. OPTISULIN (INSULIN GLARGINE) [Suspect]
     Active Substance: INSULIN GLARGINE
     Indication: TYPE 2 DIABETES MELLITUS
     Dosage: 48 U, HS, BEDTIME
     Route: 065
     Dates: start: 20180615
  7. OXPOLA [Concomitant]
     Active Substance: PRAMIPEXOLE DIHYDROCHLORIDE
     Dosage: 2 MG, BID, AFTER SUPPER AND AFTER BREAKFAST
     Route: 065
     Dates: start: 20181029
  8. ELTROXIN [Concomitant]
     Active Substance: LEVOTHYROXINE
     Dosage: 0.05 MG, QD, BEFORE BREAKFAST
  9. NOVOMIX [Concomitant]
     Active Substance: INSULIN ASPART
     Dosage: BS-14 UNITS (BEFORE SUPPER),BB-12 UNITS (BEFORE BREAKFAST) BID
     Dates: start: 20181006
  10. RIVOTRIL [Concomitant]
     Active Substance: CLONAZEPAM
  11. INSULIN DEGLUDEC [Concomitant]
     Active Substance: INSULIN DEGLUDEC
     Dosage: 42 U, QD
     Dates: start: 20190111

REACTIONS (10)
  - Dizziness [Unknown]
  - Hypoglycaemia [Recovered/Resolved]
  - Bronchitis [Recovered/Resolved]
  - Dyspnoea [Recovered/Resolved]
  - Back pain [Recovered/Resolved]
  - Influenza [Recovered/Resolved]
  - Nasopharyngitis [Recovered/Resolved]
  - General physical health deterioration [Unknown]
  - Glycosylated haemoglobin increased [Unknown]
  - Blood glucose decreased [Unknown]

NARRATIVE: CASE EVENT DATE: 20180920
